FAERS Safety Report 5761089-0 (Version None)
Quarter: 2008Q2

REPORT INFORMATION
  Report Type: 
  Country: None (occurrence: None)
  Receive Date: 20080606
  Receipt Date: 20080602
  Transmission Date: 20081010
  Serious: Yes (Hospitalization, Other)
  Sender: FDA-Public Use
  Company Number: US-JNJFOC-20080404027

PATIENT
  Sex: Female
  Weight: 127.01 kg

DRUGS (15)
  1. TOPAMAX [Suspect]
     Indication: WEIGHT DECREASED
     Route: 048
  2. METFORMIN HCL [Concomitant]
     Indication: DIABETES MELLITUS
     Route: 048
  3. TRICOR [Concomitant]
     Indication: BLOOD CHOLESTEROL
     Route: 048
  4. VERAPAMIL ER [Concomitant]
     Indication: HYPERTENSION
     Route: 048
  5. TOPROL-XL [Concomitant]
     Indication: HYPERTENSION
     Route: 048
  6. XALATAN [Concomitant]
     Indication: GLAUCOMA
     Route: 031
  7. MAGNESIUM [Concomitant]
     Indication: VITAMIN SUPPLEMENTATION
     Route: 048
  8. COUMADIN [Concomitant]
     Route: 048
  9. COUMADIN [Concomitant]
     Indication: ANTICOAGULANT THERAPY
     Route: 048
  10. ISOSORBIDE ER [Concomitant]
     Indication: ANGINA PECTORIS
     Route: 048
  11. AMBIEN [Concomitant]
     Indication: SLEEP DISORDER
     Route: 048
  12. ASPIRIN [Concomitant]
     Indication: ANTICOAGULANT THERAPY
     Route: 048
  13. TYLENOL [Concomitant]
  14. DULCOLAX [Concomitant]
  15. OMEPRAZOLE [Concomitant]
     Indication: GASTROOESOPHAGEAL REFLUX DISEASE

REACTIONS (5)
  - EYE PAIN [None]
  - HEADACHE [None]
  - PULMONARY EMBOLISM [None]
  - ROTATOR CUFF SYNDROME [None]
  - TRANSIENT ISCHAEMIC ATTACK [None]
